FAERS Safety Report 7525018-1 (Version None)
Quarter: 2011Q2

REPORT INFORMATION
  Report Type: 
  Country: None (occurrence: None)
  Receive Date: 20110606
  Receipt Date: 20110526
  Transmission Date: 20111010
  Serious: Yes (Hospitalization)
  Sender: FDA-Public Use
  Company Number: FR-NOVOPROD-329043

PATIENT
  Age: 74 Year
  Sex: Female

DRUGS (7)
  1. NOVOLOG [Suspect]
     Indication: TYPE 2 DIABETES MELLITUS
     Dosage: 44 IU, QD
     Route: 058
     Dates: start: 20110506
  2. TRIVASTAL                          /00397201/ [Suspect]
     Indication: PRODUCT USED FOR UNKNOWN INDICATION
     Dosage: 2 DF, QD
     Route: 065
     Dates: start: 20110503, end: 20110507
  3. LOSARTAN POTASSIUM [Suspect]
     Indication: PRODUCT USED FOR UNKNOWN INDICATION
     Dosage: 1 DF, QD
     Route: 048
     Dates: start: 20110430, end: 20110507
  4. CEFTRIAXONE [Concomitant]
     Dosage: UNK
     Dates: start: 20110507
  5. ERYTHROMYCIN [Suspect]
     Indication: PYREXIA
     Dosage: 3 DF, QD
     Route: 042
     Dates: start: 20110507
  6. ERYTHROMYCIN [Suspect]
     Indication: INFECTION
  7. CORDARONE [Suspect]
     Indication: TACHYCARDIA
     Dosage: 200 MG, QD
     Route: 048
     Dates: start: 20110505, end: 20110508

REACTIONS (1)
  - HYPOTONIA [None]
